FAERS Safety Report 10039490 (Version 1)
Quarter: 2014Q1

REPORT INFORMATION
  Report Type: Spontaneous
  Country: US (occurrence: US)
  Receive Date: 20140326
  Receipt Date: 20140326
  Transmission Date: 20141002
  Serious: No
  Sender: FDA-Public Use
  Company Number: US-BAYER-2014-045847

PATIENT
  Age: 82 Year
  Sex: Female
  Weight: 79 kg

DRUGS (6)
  1. ALEVE CAPLET [Suspect]
     Indication: ARTHRITIS
     Dosage: 1-2 DF, QD
     Route: 048
  2. ALEVE CAPLET [Suspect]
     Indication: PAIN
  3. ALEVE CAPLET [Suspect]
     Indication: MUSCULOSKELETAL PAIN
  4. ALEVE GELCAPS [Suspect]
     Indication: ARTHRITIS
     Dosage: 1-2 DF, QD
     Route: 048
  5. ALEVE GELCAPS [Suspect]
     Indication: PAIN
  6. ALEVE GELCAPS [Suspect]
     Indication: MUSCULOSKELETAL PAIN

REACTIONS (1)
  - Incorrect drug administration duration [None]
